FAERS Safety Report 10791637 (Version 1)
Quarter: 2015Q1

REPORT INFORMATION
  Report Type: Spontaneous
  Country: JP (occurrence: JP)
  Receive Date: 20150213
  Receipt Date: 20150213
  Transmission Date: 20150721
  Serious: Yes (Other)
  Sender: FDA-Public Use
  Company Number: JP-ROCHE-1534222

PATIENT
  Age: 6 Year
  Sex: Male
  Weight: 19 kg

DRUGS (4)
  1. TAMIFLU [Suspect]
     Active Substance: OSELTAMIVIR PHOSPHATE
     Indication: INFLUENZA
     Route: 048
     Dates: start: 20150129, end: 20150129
  2. RAPIACTA [Concomitant]
     Active Substance: PERAMIVIR
  3. ASVERIN (JAPAN) [Concomitant]
     Indication: INFLUENZA
     Dosage: AMOUNT OF 1 ONCE ADMINISTRATION: 0.16 (UNIT UNCERTAINTY)
     Route: 048
     Dates: start: 20150129
  4. CARBOCISTEINE [Concomitant]
     Active Substance: CARBOCYSTEINE
     Indication: INFLUENZA
     Dosage: AMOUNT OF 1 ONCE ADMINISTRATION: 0.4 (UNIT UNCERTAINTY)
     Route: 048
     Dates: start: 20150129

REACTIONS (1)
  - Abnormal behaviour [Recovered/Resolved]

NARRATIVE: CASE EVENT DATE: 20150129
